FAERS Safety Report 7117304-4 (Version None)
Quarter: 2010Q4

REPORT INFORMATION
  Report Type: 
  Country: None (occurrence: None)
  Receive Date: 20101122
  Receipt Date: 20101109
  Transmission Date: 20110411
  Serious: Yes (Other)
  Sender: FDA-Public Use
  Company Number: US-ELI_LILLY_AND_COMPANY-US201011003393

PATIENT
  Sex: Female

DRUGS (6)
  1. HUMALOG [Suspect]
     Indication: DIABETES MELLITUS
     Dosage: UNK, AS NEEDED
     Dates: start: 20000101
  2. HUMULIN 70/30 [Suspect]
     Indication: DIABETES MELLITUS
     Dates: start: 20070101
  3. LANTUS [Concomitant]
     Dosage: 40 U, EACH EVENING
  4. JANUMET [Concomitant]
     Dosage: 10000 MG, DAILY (1/D)
  5. LYRICA [Concomitant]
  6. SYNTHROID [Concomitant]
     Dosage: UNK, DAILY (1/D)

REACTIONS (2)
  - DYSPNOEA [None]
  - THYROID CANCER [None]
